FAERS Safety Report 6659830-8 (Version None)
Quarter: 2010Q1

REPORT INFORMATION
  Report Type: 
  Country: None (occurrence: None)
  Receive Date: 20100330
  Receipt Date: 20100330
  Transmission Date: 20100710
  Serious: Yes (Other)
  Sender: FDA-Public Use
  Company Number: None

PATIENT
  Age: 14 Year
  Sex: Male
  Weight: 64.4108 kg

DRUGS (1)
  1. PREDNISONE [Suspect]
     Indication: ASTHMA
     Dosage: 20 TABLETS 20 MG 2 @ 2X A DAY
     Dates: start: 20100315, end: 20100317

REACTIONS (7)
  - COUGH [None]
  - DYSPEPSIA [None]
  - DYSPNOEA [None]
  - HEADACHE [None]
  - INSOMNIA [None]
  - MOOD ALTERED [None]
  - THROAT TIGHTNESS [None]
